FAERS Safety Report 9911934 (Version 2)
Quarter: 2014Q1

REPORT INFORMATION
  Report Type: Spontaneous
  Country: US (occurrence: US)
  Receive Date: 20140219
  Receipt Date: 20140219
  Transmission Date: 20141002
  Serious: No
  Sender: FDA-Public Use
  Company Number: US-MYLANLABS-2013S1020955

PATIENT
  Age: 68 Year
  Sex: Female

DRUGS (1)
  1. EPINEPHRINE HYDROCHLORIDE [Suspect]

REACTIONS (2)
  - Hypotension [Recovered/Resolved]
  - Drug hypersensitivity [Recovered/Resolved]
